FAERS Safety Report 5094268-9 (Version None)
Quarter: 2006Q3

REPORT INFORMATION
  Report Type: 
  Country: None (occurrence: None)
  Receive Date: 20060831
  Receipt Date: 20060821
  Transmission Date: 20061208
  Serious: Yes (Hospitalization)
  Sender: FDA-Public Use
  Company Number: FR-GLAXOSMITHKLINE-B0435413A

PATIENT
  Age: 81 Year
  Sex: Female

DRUGS (6)
  1. ALKERAN [Suspect]
     Dates: start: 20060514, end: 20060517
  2. CORTANCYL [Suspect]
     Dosage: 40MG PER DAY
     Route: 048
     Dates: start: 20060514, end: 20060517
  3. VASTAREL [Concomitant]
     Route: 048
     Dates: end: 20060518
  4. FUMAFER [Concomitant]
     Route: 065
  5. ARANESP [Concomitant]
     Route: 065
  6. DAFALGAN [Concomitant]
     Route: 065

REACTIONS (5)
  - CONFUSIONAL STATE [None]
  - DISORIENTATION [None]
  - FALL [None]
  - ORTHOSTATIC HYPOTENSION [None]
  - RESTLESSNESS [None]
